FAERS Safety Report 7401293 (Version 4)
Quarter: 2013Q2

REPORT INFORMATION
  Report Type: Spontaneous
  Country: US (occurrence: US)
  Receive Date: 20100527
  Receipt Date: 20130419
  Transmission Date: 20140414
  Serious: Yes (Hospitalization)
  Sender: FDA-Public Use
  Company Number: US-BAYER-201023188NA

PATIENT
  Age: 30 Year
  Sex: Female
  Weight: 58.96 kg

DRUGS (4)
  1. YAZ [Suspect]
     Dosage: UNK
     Route: 048
     Dates: start: 20080602, end: 20090505
  2. RETIN-A MICRO [Concomitant]
     Dosage: UNK
     Dates: start: 2007
  3. FINACEA [Concomitant]
     Dosage: 15 %, APPLY 1 TO 2 TIMES DAILY, UNK
     Route: 061
     Dates: start: 20090228
  4. HYDROCODONE/ACETAMINOPHEN [Concomitant]
     Dosage: 5/325 MG 1 TABLET EVERY 4 HOURS AS NEEDED.

REACTIONS (4)
  - Pulmonary embolism [Unknown]
  - Atelectasis [None]
  - Dyspnoea [Unknown]
  - Chest pain [Unknown]
